FAERS Safety Report 6301138-4 (Version None)
Quarter: 2009Q3

REPORT INFORMATION
  Report Type: 
  Country: None (occurrence: None)
  Receive Date: 20090807
  Receipt Date: 20090413
  Transmission Date: 20100115
  Serious: Yes (Hospitalization, Other)
  Sender: FDA-Public Use
  Company Number: US-PFIZER INC-2009166791

PATIENT
  Age: 66 Year
  Sex: Male

DRUGS (17)
  1. ARGATROBAN [Suspect]
     Indication: HEPARIN-INDUCED THROMBOCYTOPENIA
     Dosage: 2 UG/KG/MIN
     Route: 042
     Dates: start: 20090202, end: 20090204
  2. AMITRIPTYLINE [Concomitant]
  3. ASPIRIN [Concomitant]
  4. CARVEDILOL [Concomitant]
  5. CLOPIDOGREL [Concomitant]
  6. VITAMIN B-12 [Concomitant]
  7. DOCUSATE [Concomitant]
  8. FENOFIBRATE [Concomitant]
  9. FOLIC ACID [Concomitant]
  10. FUROSEMIDE [Concomitant]
  11. LEVOTHYROXINE [Concomitant]
  12. LISINOPRIL [Concomitant]
  13. METHOCARBAMOL [Concomitant]
  14. PANTOPRAZOLE [Concomitant]
  15. PREDNISONE [Concomitant]
  16. PYRIDOXIN [Concomitant]
  17. SIMVASTATIN [Concomitant]

REACTIONS (3)
  - PAIN [None]
  - RASH [None]
  - SKIN BURNING SENSATION [None]
